FAERS Safety Report 10882928 (Version 1)
Quarter: 2015Q1

REPORT INFORMATION
  Report Type: Spontaneous
  Country: GB (occurrence: GB)
  Receive Date: 20150303
  Receipt Date: 20150303
  Transmission Date: 20150721
  Serious: Yes (Other)
  Sender: FDA-Public Use
  Company Number: GB-BAYER-2015-028542

PATIENT
  Age: 24 Year
  Sex: Female
  Weight: 50.8 kg

DRUGS (2)
  1. METRONIDAZOLE. [Concomitant]
     Active Substance: METRONIDAZOLE
  2. CLOTRIMAZOLE VAGINAL INSERTS [Suspect]
     Active Substance: CLOTRIMAZOLE
     Indication: VULVOVAGINAL CANDIDIASIS
     Dosage: 500 MG, UNK
     Route: 067
     Dates: start: 20150211

REACTIONS (4)
  - Dysuria [Recovering/Resolving]
  - Abdominal pain lower [Recovering/Resolving]
  - Vulvovaginal pain [Recovering/Resolving]
  - Vaginal discharge [Recovering/Resolving]

NARRATIVE: CASE EVENT DATE: 20150212
